FAERS Safety Report 11448251 (Version 1)
Quarter: 2015Q3

REPORT INFORMATION
  Report Type: Spontaneous
  Country: US (occurrence: US)
  Receive Date: 20150831
  Receipt Date: 20150831
  Transmission Date: 20151125
  Serious: Yes (Other)
  Sender: FDA-Public Use
  Company Number: US-ELI_LILLY_AND_COMPANY-US200906002630

PATIENT
  Age: 81 Year
  Sex: Female

DRUGS (13)
  1. CYMBALTA [Suspect]
     Active Substance: DULOXETINE HYDROCHLORIDE
     Dosage: 30 MG, UNK
     Dates: start: 20090618
  2. PREDNISONE. [Concomitant]
     Active Substance: PREDNISONE
  3. OLOPATADINE HYDROCHLORIDE. [Concomitant]
     Active Substance: OLOPATADINE HYDROCHLORIDE
  4. GLIPIZIDE. [Concomitant]
     Active Substance: GLIPIZIDE
     Indication: TYPE 2 DIABETES MELLITUS
  5. BENTYL [Concomitant]
     Active Substance: DICYCLOMINE HYDROCHLORIDE
     Indication: GASTRIC DISORDER
  6. METHOTREXATE [Concomitant]
     Active Substance: METHOTREXATE
  7. CYMBALTA [Suspect]
     Active Substance: DULOXETINE HYDROCHLORIDE
     Indication: FIBROMYALGIA
     Dosage: 30 MG, UNK
     Dates: start: 200905, end: 2009
  8. POTASSIUM [Concomitant]
     Active Substance: POTASSIUM
  9. LASIX [Concomitant]
     Active Substance: FUROSEMIDE
  10. PEPCID [Concomitant]
     Active Substance: FAMOTIDINE
  11. CYMBALTA [Suspect]
     Active Substance: DULOXETINE HYDROCHLORIDE
     Dosage: 60 MG, UNK
     Dates: start: 2009, end: 2009
  12. LISINOPRIL. [Concomitant]
     Active Substance: LISINOPRIL
     Indication: HYPERTENSION
  13. TYLENOL                                 /SCH/ [Concomitant]
     Dosage: UNK, AS NEEDED

REACTIONS (4)
  - Drug ineffective [Recovering/Resolving]
  - Pain in extremity [Unknown]
  - Gait disturbance [Unknown]
  - Wheelchair user [Unknown]

NARRATIVE: CASE EVENT DATE: 2009
